FAERS Safety Report 7433409-2 (Version None)
Quarter: 2011Q2

REPORT INFORMATION
  Report Type: 
  Country: None (occurrence: None)
  Receive Date: 20110422
  Receipt Date: 20110415
  Transmission Date: 20111010
  Serious: Yes (Other)
  Sender: FDA-Public Use
  Company Number: US-ELI_LILLY_AND_COMPANY-US201104005159

PATIENT
  Age: 62 Year
  Sex: Male

DRUGS (3)
  1. LYRICA [Concomitant]
     Indication: FIBROMYALGIA
     Dosage: UNK
  2. METFORMIN [Concomitant]
     Dosage: UNK
  3. HUMALOG [Suspect]
     Indication: TYPE 2 DIABETES MELLITUS
     Dosage: UNK, PRN

REACTIONS (14)
  - SCAR EXCISION [None]
  - OVERWEIGHT [None]
  - BLOOD GLUCOSE INCREASED [None]
  - CATARACT [None]
  - VISION BLURRED [None]
  - BLOOD GLUCOSE DECREASED [None]
  - FEELING ABNORMAL [None]
  - BLOOD GLUCOSE FLUCTUATION [None]
  - INAPPROPRIATE SCHEDULE OF DRUG ADMINISTRATION [None]
  - LACRIMATION INCREASED [None]
  - STRESS [None]
  - RETINAL TEAR [None]
  - VISUAL ACUITY REDUCED [None]
  - APPETITE DISORDER [None]
